FAERS Safety Report 8321993-6 (Version None)
Quarter: 2012Q2

REPORT INFORMATION
  Report Type: 
  Country: None (occurrence: None)
  Receive Date: 20120430
  Receipt Date: 20120425
  Transmission Date: 20120825
  Serious: No
  Sender: FDA-Public Use
  Company Number: US-PFIZER INC-2012102809

PATIENT
  Sex: Female
  Weight: 50.794 kg

DRUGS (2)
  1. IBUPROFEN (ADVIL) [Suspect]
     Indication: TOOTH INFECTION
  2. IBUPROFEN (ADVIL) [Suspect]
     Indication: TOOTHACHE
     Dosage: 400 MG (TWO TABLETS OF 200MG), 3X/DAY
     Route: 048
     Dates: start: 20120422

REACTIONS (4)
  - HEART RATE INCREASED [None]
  - PALPITATIONS [None]
  - MIDDLE INSOMNIA [None]
  - INSOMNIA [None]
